FAERS Safety Report 7552960-8 (Version None)
Quarter: 2011Q2

REPORT INFORMATION
  Report Type: 
  Country: None (occurrence: None)
  Receive Date: 20110616
  Receipt Date: 20110610
  Transmission Date: 20111010
  Serious: Yes (Hospitalization)
  Sender: FDA-Public Use
  Company Number: US-CEPHALON-2011002958

PATIENT
  Sex: Female
  Weight: 57 kg

DRUGS (3)
  1. TRISENOX [Suspect]
     Route: 042
     Dates: start: 20110608
  2. TRETINOIN [Suspect]
     Dates: start: 20110404, end: 20110604
  3. TRISENOX [Suspect]
     Indication: ACUTE PROMYELOCYTIC LEUKAEMIA
     Route: 042
     Dates: start: 20110404, end: 20110606

REACTIONS (2)
  - DEVICE RELATED INFECTION [None]
  - SEPSIS [None]
